FAERS Safety Report 16930370 (Version 1)
Quarter: 2019Q4

REPORT INFORMATION
  Report Type: Spontaneous
  Country: VN (occurrence: VN)
  Receive Date: 20191017
  Receipt Date: 20191017
  Transmission Date: 20200122
  Serious: Yes (Death)
  Sender: FDA-Public Use
  Company Number: NVSC2019VN003796

PATIENT
  Age: 59 Year
  Sex: Female
  Weight: 60 kg

DRUGS (2)
  1. VOLTAREN [Suspect]
     Active Substance: DICLOFENAC SODIUM
     Indication: PRODUCT USED FOR UNKNOWN INDICATION
     Dosage: 2 DF, QD
     Route: 030
     Dates: start: 20191007, end: 20191007
  2. DROTAVEP [Suspect]
     Active Substance: DROTAVERINE HYDROCHLORIDE
     Indication: RENAL COLIC
     Dosage: 80 MG, QD
     Route: 048
     Dates: start: 20191007, end: 20191007

REACTIONS (3)
  - Anaphylactic shock [Fatal]
  - Breath sounds abnormal [Fatal]
  - Blood pressure decreased [Fatal]

NARRATIVE: CASE EVENT DATE: 20191007
